FAERS Safety Report 7030577-1 (Version None)
Quarter: 2010Q4

REPORT INFORMATION
  Report Type: 
  Country: None (occurrence: None)
  Receive Date: 20101006
  Receipt Date: 20100923
  Transmission Date: 20110411
  Serious: Yes (Hospitalization)
  Sender: FDA-Public Use
  Company Number: FR-ROCHE-726736

PATIENT
  Sex: Male
  Weight: 65 kg

DRUGS (9)
  1. BEVACIZUMAB [Suspect]
     Indication: NON-SMALL CELL LUNG CANCER
     Dosage: LAST DOSE PROR TO SAE: 02 SEPTEMBER 2010
     Route: 042
     Dates: start: 20100531, end: 20100923
  2. PACLITAXEL [Suspect]
     Indication: NON-SMALL CELL LUNG CANCER
     Dosage: LAST DOSE PRIOR TO SAE: 02 SEP 2010
     Route: 042
     Dates: start: 20100531, end: 20100923
  3. CARBOPLATIN [Suspect]
     Indication: NON-SMALL CELL LUNG CANCER
     Dosage: DOSE: 6 AUC.  LAST DOSE PRIOR TO SAE: 02 SEP 2010.
     Route: 042
     Dates: start: 20100531, end: 20100923
  4. SKENAN [Concomitant]
     Dates: start: 20100409
  5. EFFERALGAN [Concomitant]
     Dosage: TDD: 500 TO 3 GM
  6. OXYCODONE HCL [Concomitant]
     Dosage: TDD: 20 TO 40 MG
     Route: 048
     Dates: start: 20100401
  7. OXYCONTIN [Concomitant]
     Route: 048
     Dates: start: 20100101
  8. PARIET [Concomitant]
     Dates: start: 20100419
  9. TRANSIPEG [Concomitant]
     Dates: start: 20100410

REACTIONS (2)
  - CELLULITIS [None]
  - FEBRILE BONE MARROW APLASIA [None]
